FAERS Safety Report 23587250 (Version 2)
Quarter: 2024Q1

REPORT INFORMATION
  Report Type: Report from Study
  Country: EG (occurrence: EG)
  Receive Date: 20240301
  Receipt Date: 20240329
  Transmission Date: 20240409
  Serious: Yes (Hospitalization)
  Sender: FDA-Public Use
  Company Number: EG-ABBVIE-5659212

PATIENT
  Age: 70 Year
  Sex: Male
  Weight: 130 kg

DRUGS (6)
  1. RINVOQ [Suspect]
     Active Substance: UPADACITINIB
     Indication: Rheumatoid arthritis
     Dosage: FORM STRENGTH:15 MILLIGRAM
     Route: 048
     Dates: start: 2021, end: 202312
  2. RINVOQ [Suspect]
     Active Substance: UPADACITINIB
     Indication: Rheumatoid arthritis
     Dosage: FORM STRENGTH:15 MILLIGRAM
     Route: 048
     Dates: start: 20240206
  3. ASPIRIN [Concomitant]
     Active Substance: ASPIRIN
     Indication: Product used for unknown indication
  4. ENTRESTO [Concomitant]
     Active Substance: SACUBITRIL\VALSARTAN
     Indication: Product used for unknown indication
  5. TAMSULOSIN HYDROCHLORIDE [Concomitant]
     Active Substance: TAMSULOSIN HYDROCHLORIDE
     Indication: Product used for unknown indication
  6. LOVASTATIN [Concomitant]
     Active Substance: LOVASTATIN
     Indication: Blood cholesterol increased

REACTIONS (5)
  - Coronary arterial stent insertion [Recovered/Resolved]
  - Muscular weakness [Recovered/Resolved]
  - White blood cell count increased [Not Recovered/Not Resolved]
  - Generalised oedema [Recovered/Resolved]
  - Anaemia [Not Recovered/Not Resolved]

NARRATIVE: CASE EVENT DATE: 20210321
